FAERS Safety Report 20716402 (Version 1)
Quarter: 2022Q2

REPORT INFORMATION
  Report Type: Spontaneous
  Country: FR (occurrence: FR)
  Receive Date: 20220416
  Receipt Date: 20220416
  Transmission Date: 20220720
  Serious: Yes (Hospitalization, Other)
  Sender: FDA-Public Use
  Company Number: FR-AFSSAPS-MP20221426

PATIENT
  Age: 64 Year
  Sex: Female
  Weight: 68.6 kg

DRUGS (3)
  1. HYDROCHLOROTHIAZIDE [Suspect]
     Active Substance: HYDROCHLOROTHIAZIDE
     Indication: Hypertension
     Dosage: 25 MILLIGRAM, ONCE A DAY (1 TABLET IN THE MORNING)
     Route: 048
     Dates: start: 20210110, end: 20210123
  2. CYMBALTA [Suspect]
     Active Substance: DULOXETINE HYDROCHLORIDE
     Indication: Bradyphrenia
     Dosage: 60 MILLIGRAM, TWO TIMES A DAY (1 TABLET MORNING AND 1 EVENING)
     Route: 048
  3. AMISULPRIDE [Suspect]
     Active Substance: AMISULPRIDE
     Indication: Bradyphrenia
     Dosage: 50 MILLIGRAM, ONCE A DAY (1 TABLET IN THE EVENING)
     Route: 048

REACTIONS (2)
  - Inappropriate antidiuretic hormone secretion [Recovered/Resolved]
  - Hyponatraemia [Recovered/Resolved]

NARRATIVE: CASE EVENT DATE: 20210123
